FAERS Safety Report 7022923-X (Version None)
Quarter: 2010Q3

REPORT INFORMATION
  Report Type: 
  Country: None (occurrence: None)
  Receive Date: 20100930
  Receipt Date: 20100922
  Transmission Date: 20110219
  Serious: Yes (Other)
  Sender: FDA-Public Use
  Company Number: GXKR2010NL10776

PATIENT
  Sex: Female

DRUGS (5)
  1. CIPROFLOXACIN SANDOZ (NGX) [Suspect]
     Indication: BACTERIAL INFECTION
     Dosage: 500 MG, BID
     Route: 048
     Dates: start: 20100607
  2. ETHINYL ESTRADIOL AND NORETHINDRONE [Interacting]
     Indication: CONTRACEPTION
     Dosage: UNK
     Dates: start: 20070919, end: 20100701
  3. VALPROIC ACID [Concomitant]
     Dosage: 1 DF, QD
     Dates: start: 20100209
  4. CITALOPRAM HYDROBROMIDE [Concomitant]
     Dosage: 1 DF, QD
     Dates: start: 20090821
  5. FUROSEMIDE [Concomitant]
     Dosage: 1 DF, QD
     Dates: start: 20100528, end: 20100707

REACTIONS (1)
  - PREGNANCY ON ORAL CONTRACEPTIVE [None]
